FAERS Safety Report 10461769 (Version 2)
Quarter: 2014Q4

REPORT INFORMATION
  Report Type: Spontaneous
  Country: JP (occurrence: JP)
  Receive Date: 20140918
  Receipt Date: 20141017
  Transmission Date: 20150528
  Serious: Yes (Other)
  Sender: FDA-Public Use
  Company Number: JP-PFIZER INC-2014257359

PATIENT
  Age: 44 Year
  Sex: Female

DRUGS (2)
  1. SOL-MELCORT [Suspect]
     Active Substance: METHYLPREDNISOLONE SODIUM SUCCINATE
     Indication: IGA NEPHROPATHY
     Dosage: 500 MG 3-DAY DIV
  2. PREDNISOLON [Concomitant]
     Active Substance: PREDNISOLONE
     Dosage: 30 MG 4-DAY
     Route: 048

REACTIONS (2)
  - Pyelonephritis acute [Unknown]
  - Disseminated intravascular coagulation [Recovering/Resolving]
